FAERS Safety Report 19720803 (Version 1)
Quarter: 2021Q3

REPORT INFORMATION
  Report Type: Spontaneous
  Country: US (occurrence: US)
  Receive Date: 20210819
  Receipt Date: 20210819
  Transmission Date: 20211014
  Serious: Yes (Disabling)
  Sender: FDA-Public Use
  Company Number: None

PATIENT
  Sex: Female

DRUGS (1)
  1. SUN BUM SUNSCREEN LIP BALM BROAD SPECTRUM SPF 30 MANGO [Suspect]
     Active Substance: AVOBENZONE\HOMOSALATE\OCTINOXATE\OCTISALATE
     Dates: start: 20210805, end: 20210819

REACTIONS (4)
  - Paraesthesia oral [None]
  - Pain [None]
  - Angular cheilitis [None]
  - Oral discomfort [None]

NARRATIVE: CASE EVENT DATE: 20210805
